FAERS Safety Report 10607628 (Version 1)
Quarter: 2014Q4

REPORT INFORMATION
  Report Type: Spontaneous
  Country: US (occurrence: None)
  Receive Date: 20141124
  Receipt Date: 20141124
  Transmission Date: 20150529
  Serious: Yes (Hospitalization)
  Sender: FDA-Public Use
  Company Number: None

PATIENT
  Age: 61 Year
  Sex: Male
  Weight: 96 kg

DRUGS (12)
  1. VENTOLIN [Concomitant]
     Active Substance: ALBUTEROL SULFATE
  2. ALEVE [Suspect]
     Active Substance: NAPROXEN SODIUM
     Indication: PAIN
     Dosage: PAST 6 MOS
     Route: 048
  3. GEMBIFROZIL [Concomitant]
  4. ASA [Concomitant]
     Active Substance: ASPIRIN
  5. ALEVE [Concomitant]
     Active Substance: NAPROXEN SODIUM
  6. LISINOPRIL AND HYDROCHLOROTHIAZIDE [Suspect]
     Active Substance: HYDROCHLOROTHIAZIDE\LISINOPRIL
     Indication: HYPERTENSION
     Dosage: CHRONIC
     Route: 048
  7. PREDNISONE. [Concomitant]
     Active Substance: PREDNISONE
  8. LEVAQUIN [Concomitant]
     Active Substance: LEVOFLOXACIN
  9. METFORMIN [Concomitant]
     Active Substance: METFORMIN HYDROCHLORIDE
  10. SPIRIVA [Concomitant]
     Active Substance: TIOTROPIUM BROMIDE MONOHYDRATE
  11. GLIPIZIDE. [Concomitant]
     Active Substance: GLIPIZIDE
  12. METOPROLOL TARTATE [Concomitant]
     Active Substance: METOPROLOL TARTRATE

REACTIONS (6)
  - Hyponatraemia [None]
  - Interstitial lung disease [None]
  - Pneumomediastinum [None]
  - Hyperkalaemia [None]
  - Respiratory failure [None]
  - Acute kidney injury [None]

NARRATIVE: CASE EVENT DATE: 20140524
